FAERS Safety Report 9478614 (Version 2)
Quarter: 2013Q3

REPORT INFORMATION
  Report Type: Report from Study
  Country: CN (occurrence: CN)
  Receive Date: 20130827
  Receipt Date: 20130830
  Transmission Date: 20140515
  Serious: Yes (Other)
  Sender: FDA-Public Use
  Company Number: CN-PFIZER INC-2013242783

PATIENT
  Age: 69 Year
  Sex: Female

DRUGS (10)
  1. DOXORUBICIN HCL [Suspect]
     Indication: NON-HODGKIN^S LYMPHOMA
     Dosage: UNK
  2. DOXORUBICIN HCL [Suspect]
     Indication: LYMPHOMA
  3. CYCLOPHOSPHAMIDE [Suspect]
     Indication: NON-HODGKIN^S LYMPHOMA
     Dosage: UNK
  4. CYCLOPHOSPHAMIDE [Suspect]
     Indication: LYMPHOMA
  5. ONCOVIN [Suspect]
     Indication: NON-HODGKIN^S LYMPHOMA
     Dosage: UNK
  6. ONCOVIN [Suspect]
     Indication: LYMPHOMA
  7. PREDNISONE [Suspect]
     Indication: NON-HODGKIN^S LYMPHOMA
     Dosage: UNK
  8. PREDNISONE [Suspect]
     Indication: LYMPHOMA
  9. RITUXIMAB [Suspect]
     Indication: NON-HODGKIN^S LYMPHOMA
     Dosage: UNK
  10. RITUXIMAB [Suspect]
     Indication: LYMPHOMA

REACTIONS (1)
  - Pulmonary toxicity [Unknown]
